FAERS Safety Report 4987192-0 (Version None)
Quarter: 2006Q2

REPORT INFORMATION
  Report Type: 
  Country: None (occurrence: None)
  Receive Date: 20060501
  Receipt Date: 20060424
  Transmission Date: 20061013
  Serious: Yes (Hospitalization)
  Sender: FDA-Public Use
  Company Number: GB-ROCHE-445784

PATIENT
  Age: 57 Year
  Sex: Male
  Weight: 77.2 kg

DRUGS (2)
  1. XELODA [Suspect]
     Indication: COLON CANCER
     Dosage: UNIT NOT PROVIDED.
     Route: 048
     Dates: start: 20060207, end: 20060312
  2. AVASTIN [Suspect]
     Indication: COLON CANCER
     Route: 042
     Dates: start: 20060201, end: 20060228

REACTIONS (7)
  - DIARRHOEA [None]
  - EPISTAXIS [None]
  - HAEMATEMESIS [None]
  - HEADACHE [None]
  - MELAENA [None]
  - OESOPHAGEAL ULCER [None]
  - PHOTOPHOBIA [None]
